FAERS Safety Report 18313929 (Version 2)
Quarter: 2020Q3

REPORT INFORMATION
  Report Type: Spontaneous
  Country: US (occurrence: US)
  Receive Date: 20200925
  Receipt Date: 20200929
  Transmission Date: 20201103
  Serious: No
  Sender: FDA-Public Use
  Company Number: US-JNJFOC-20200935056

PATIENT
  Age: 57 Year
  Sex: Female
  Weight: 58.11 kg

DRUGS (1)
  1. WOMENS ROGAINE UNSCENTED [Suspect]
     Active Substance: MINOXIDIL
     Indication: ALOPECIA
     Dosage: HALF A CAPFULL ONCE A DAY?LAST DOSE ADMINISTERED ON 16?SEPT?2020
     Route: 061
     Dates: start: 20200528

REACTIONS (1)
  - Drug ineffective [Unknown]
